FAERS Safety Report 7302410-1 (Version None)
Quarter: 2011Q1

REPORT INFORMATION
  Report Type: 
  Country: None (occurrence: None)
  Receive Date: 20110218
  Receipt Date: 20110215
  Transmission Date: 20110831
  Serious: No
  Sender: FDA-Public Use
  Company Number: US-PFIZER INC-2011033416

PATIENT
  Sex: Male
  Weight: 56.818 kg

DRUGS (7)
  1. HERBAL PREPARATION [Concomitant]
     Dosage: UNK
  2. ADVIL [Suspect]
     Indication: BACK PAIN
     Dosage: 1600 MG, 1X/DAY, 2 TABS TWICE A DAY UP TO 4 TIMES A DAY
     Route: 048
     Dates: start: 20110101, end: 20110201
  3. ANDROGEL [Suspect]
     Indication: BLOOD TESTOSTERONE FREE DECREASED
     Dosage: 2.5 G, 1X/DAY, HALF PACKAGE OF 5 G
     Route: 003
     Dates: start: 20110108, end: 20110123
  4. LORAZEPAM [Concomitant]
     Dosage: 2.5 MG, 4X/DAY, 2 IN AM, LAT LUNCH, 1 AT SUPPER, AT EVRY NIGHT
  5. TRAZODONE [Concomitant]
     Dosage: 100 MG, EVERY NIGHT
  6. ANDROGEL [Suspect]
     Indication: BLOOD TESTOSTERONE DECREASED
     Dosage: 5 G, 1X/DAY
     Route: 003
     Dates: start: 20110124
  7. CYMBALTA [Concomitant]
     Dosage: 60 MG, UNK

REACTIONS (8)
  - DEPRESSION [None]
  - BACK PAIN [None]
  - IRRITABILITY [None]
  - ABDOMINAL DISCOMFORT [None]
  - ANXIETY [None]
  - DRUG ADMINISTERED AT INAPPROPRIATE SITE [None]
  - COUGH [None]
  - PARANASAL SINUS HYPERSECRETION [None]
